FAERS Safety Report 9390460 (Version 1)
Quarter: 2013Q3

REPORT INFORMATION
  Report Type: Spontaneous
  Country: FR (occurrence: FR)
  Receive Date: 20130709
  Receipt Date: 20130709
  Transmission Date: 20140515
  Serious: Yes (Death)
  Sender: FDA-Public Use
  Company Number: FR-ROCHE-1243938

PATIENT
  Sex: Male

DRUGS (2)
  1. MABTHERA [Suspect]
     Indication: PRODUCT USED FOR UNKNOWN INDICATION
     Dosage: CYCLICAL
     Route: 064
     Dates: start: 20120410, end: 20120424
  2. MABTHERA [Suspect]
     Route: 065
     Dates: start: 20120424

REACTIONS (3)
  - Spina bifida [Fatal]
  - Arnold-Chiari malformation [Fatal]
  - Maternal exposure timing unspecified [Unknown]
